FAERS Safety Report 6609700-6 (Version None)
Quarter: 2010Q1

REPORT INFORMATION
  Report Type: 
  Country: None (occurrence: None)
  Receive Date: 20100302
  Receipt Date: 20100223
  Transmission Date: 20100710
  Serious: Yes (Hospitalization, Other)
  Sender: FDA-Public Use
  Company Number: CA-JNJFOC-20090502508

PATIENT
  Sex: Male
  Weight: 86 kg

DRUGS (2)
  1. RISPERDAL CONSTA [Suspect]
     Indication: SCHIZOAFFECTIVE DISORDER
     Route: 030
  2. OLANZAPINE [Concomitant]
     Indication: SCHIZOPHRENIA
     Route: 048

REACTIONS (11)
  - CHEST PAIN [None]
  - CREPITATIONS [None]
  - DEEP VEIN THROMBOSIS [None]
  - PAIN IN EXTREMITY [None]
  - PLATELET COUNT INCREASED [None]
  - PNEUMONIA [None]
  - POLYCHROMASIA [None]
  - PULMONARY EMBOLISM [None]
  - PULMONARY INFARCTION [None]
  - RED BLOOD CELL ABNORMALITY [None]
  - WHITE BLOOD CELL COUNT INCREASED [None]
